FAERS Safety Report 7885523-5 (Version None)
Quarter: 2011Q4

REPORT INFORMATION
  Report Type: 
  Country: None (occurrence: None)
  Receive Date: 20111102
  Receipt Date: 20110627
  Transmission Date: 20120403
  Serious: Yes (Other)
  Sender: FDA-Public Use
  Company Number: US-AMGEN-USASP2011002360

PATIENT
  Age: 55 Year
  Sex: Male
  Weight: 176.87 kg

DRUGS (12)
  1. THEOPHYLLINE [Concomitant]
     Dosage: 200 UNK, QD
  2. SPIRIVA [Concomitant]
     Dosage: UNK UNK, QD
  3. PREDNISONE [Concomitant]
     Dosage: 5 MG, QD
  4. ZOLOFT [Concomitant]
     Dosage: UNK UNK, BID
  5. QUINAPRIL [Concomitant]
     Dosage: 40 MG, BID
  6. COUMADIN [Concomitant]
     Dosage: UNK UNK, QD
  7. LASIX [Concomitant]
     Dosage: 40 MG, BID
  8. ENBREL [Suspect]
     Indication: RHEUMATOID ARTHRITIS
     Dosage: 50 MG, QWK
  9. COREG [Concomitant]
     Dosage: 25 MG, BID
  10. GLYBURIDE [Concomitant]
     Dosage: 10 MG, QD
  11. ASPIRIN [Concomitant]
     Dosage: 80 MG, QD
  12. ADVAIR DISKUS 100/50 [Concomitant]
     Dosage: UNK UNK, BID

REACTIONS (14)
  - ANXIETY [None]
  - INJECTION SITE REACTION [None]
  - ARTHRALGIA [None]
  - POOR QUALITY SLEEP [None]
  - INJECTION SITE PAIN [None]
  - ANTINUCLEAR ANTIBODY POSITIVE [None]
  - FATIGUE [None]
  - BLOOD CREATINE PHOSPHOKINASE INCREASED [None]
  - MUSCULAR WEAKNESS [None]
  - GOUT [None]
  - INJECTION SITE SWELLING [None]
  - CELLULITIS [None]
  - INJECTION SITE ERYTHEMA [None]
  - INJECTION SITE RASH [None]
